FAERS Safety Report 4934993-0 (Version None)
Quarter: 2006Q1

REPORT INFORMATION
  Report Type: 
  Country: None (occurrence: None)
  Receive Date: 20060127
  Receipt Date: 20051220
  Transmission Date: 20060701
  Serious: Yes (Other)
  Sender: FDA-Public Use
  Company Number: 2005172782

PATIENT
  Age: 70 Year
  Sex: Female
  Weight: 58.9676 kg

DRUGS (4)
  1. LYRICA [Suspect]
     Indication: FIBROMYALGIA
     Dosage: 75 MG (75 MG, 1 IN 1 D)
     Dates: start: 20051101
  2. ALEVE [Concomitant]
  3. ZOLOFT [Concomitant]
  4. VITAMINS [Concomitant]

REACTIONS (3)
  - AMNESIA [None]
  - DRUG EFFECT DECREASED [None]
  - OEDEMA PERIPHERAL [None]
